FAERS Safety Report 15764675 (Version 1)
Quarter: 2018Q4

REPORT INFORMATION
  Report Type: Spontaneous
  Country: RS (occurrence: RS)
  Receive Date: 20181227
  Receipt Date: 20181227
  Transmission Date: 20190205
  Serious: Yes (Other)
  Sender: FDA-Public Use
  Company Number: RS-EMD SERONO-9060912

PATIENT
  Sex: Female

DRUGS (2)
  1. REBIF [Suspect]
     Active Substance: INTERFERON BETA-1A
     Dosage: CURRENTLY ON FULL DOSE
  2. REBIF [Suspect]
     Active Substance: INTERFERON BETA-1A
     Indication: RELAPSING-REMITTING MULTIPLE SCLEROSIS
     Dosage: FORM STRENGTH: 44 (UNSPECIFIED UNITS)
     Route: 058
     Dates: start: 20181004

REACTIONS (17)
  - Muscle spasms [Unknown]
  - Muscular weakness [Unknown]
  - Platelet count decreased [Unknown]
  - Incontinence [Unknown]
  - Hypoaesthesia [Unknown]
  - Hyperreflexia [Unknown]
  - Aspartate aminotransferase increased [Recovered/Resolved]
  - Expanded disability status scale score increased [Unknown]
  - Musculoskeletal disorder [Unknown]
  - Lip disorder [Unknown]
  - Extensor plantar response [Unknown]
  - Alanine aminotransferase increased [Recovered/Resolved]
  - Gait disturbance [Unknown]
  - CSF oligoclonal band present [Unknown]
  - Musculoskeletal stiffness [Unknown]
  - Nuclear magnetic resonance imaging abnormal [Unknown]
  - Mean cell volume decreased [Unknown]

NARRATIVE: CASE EVENT DATE: 2018
